FAERS Safety Report 23675596 (Version 2)
Quarter: 2024Q2

REPORT INFORMATION
  Report Type: Spontaneous
  Country: NL (occurrence: NL)
  Receive Date: 20240327
  Receipt Date: 20240404
  Transmission Date: 20240716
  Serious: Yes (Death, Life-Threatening, Hospitalization, Other)
  Sender: FDA-Public Use
  Company Number: NL-ALKEM LABORATORIES LIMITED-NL-ALKEM-2024-05163

PATIENT
  Age: 54 Year
  Sex: Female

DRUGS (10)
  1. METHADONE HYDROCHLORIDE [Suspect]
     Active Substance: METHADONE HYDROCHLORIDE
     Indication: Product used for unknown indication
     Dosage: 45 MILLIGRAM
     Route: 065
  2. METHADONE HYDROCHLORIDE [Suspect]
     Active Substance: METHADONE HYDROCHLORIDE
     Dosage: 25 MILLIGRAM, QD, TAPERED DOSE
     Route: 065
  3. COCAINE [Suspect]
     Active Substance: COCAINE
     Indication: Drug abuse
     Dosage: UNK
     Route: 065
  4. ACYCLOVIR [Concomitant]
     Active Substance: ACYCLOVIR
     Indication: Pulmonary sepsis
     Dosage: 600 MILLIGRAM
     Route: 065
  5. CEFTRIAXONE [Concomitant]
     Active Substance: CEFTRIAXONE\CEFTRIAXONE SODIUM
     Indication: Pulmonary sepsis
     Dosage: 800 MILLIGRAM, BID
     Route: 065
  6. CIPROFLOXACIN [Concomitant]
     Active Substance: CIPROFLOXACIN
     Indication: Pulmonary sepsis
     Dosage: 1000 MILLIGRAM, QD, DURING 3 DAYS
     Route: 065
  7. DEXAMETHASONE [Concomitant]
     Active Substance: DEXAMETHASONE
     Indication: Pulmonary sepsis
     Dosage: 10 MILLIGRAM, SINGLE DOSE
     Route: 065
  8. PIPERACILLIN AND TAZOBACTAM [Concomitant]
     Active Substance: PIPERACILLIN SODIUM\TAZOBACTAM SODIUM
     Indication: Pulmonary sepsis
     Dosage: UNK, TID, 4000/500 MG
     Route: 065
  9. RISPERIDONE [Concomitant]
     Active Substance: RISPERIDONE
     Indication: Product used for unknown indication
     Dosage: 2 MILLIGRAM, QD
     Route: 065
  10. RISPERIDONE [Concomitant]
     Active Substance: RISPERIDONE
     Dosage: 2 MILLIGRAM, READMINISTERED
     Route: 065

REACTIONS (2)
  - Toxic leukoencephalopathy [Fatal]
  - Catatonia [Fatal]
